FAERS Safety Report 13545419 (Version 1)
Quarter: 2017Q2

REPORT INFORMATION
  Report Type: Spontaneous
  Country: US (occurrence: US)
  Receive Date: 20170513
  Receipt Date: 20170513
  Transmission Date: 20170830
  Serious: Yes (Other)
  Sender: FDA-Public Use
  Company Number: None

PATIENT
  Age: 66 Year
  Sex: Female
  Weight: 71.1 kg

DRUGS (10)
  1. ALBUTEROL. [Concomitant]
     Active Substance: ALBUTEROL
  2. OMEGA 3 [Concomitant]
     Active Substance: OMEGA-3 FATTY ACIDS
  3. B-50 COMPLEX [Concomitant]
  4. RESTASIS [Suspect]
     Active Substance: CYCLOSPORINE
  5. OMEGA 6 FATTY ACIDS [Concomitant]
     Active Substance: OMEGA-6 FATTY ACIDS
  6. FLONASE [Concomitant]
     Active Substance: FLUTICASONE PROPIONATE
  7. OMEGA 9 [Concomitant]
  8. VITAMIN D [Concomitant]
     Active Substance: CHOLECALCIFEROL
  9. BREO ELLIPTA [Suspect]
     Active Substance: FLUTICASONE FUROATE\VILANTEROL TRIFENATATE
     Indication: ASTHMA
     Dosage: ?          OTHER STRENGTH:25 MCG;QUANTITY:1 PUFF(S);?
     Route: 055
     Dates: start: 20161110, end: 20170513
  10. VIACTIVE (CALCIUM) [Concomitant]
     Active Substance: CALCIUM\VITAMIN D\VITAMIN K5

REACTIONS (3)
  - Insomnia [None]
  - Oral candidiasis [None]
  - Therapy non-responder [None]

NARRATIVE: CASE EVENT DATE: 20170115
